FAERS Safety Report 4323696-1 (Version None)
Quarter: 2004Q1

REPORT INFORMATION
  Report Type: 
  Country: None (occurrence: None)
  Receive Date: 20040324
  Receipt Date: 20040324
  Transmission Date: 20041129
  Serious: Yes (Life-Threatening)
  Sender: FDA-Public Use
  Company Number: None

PATIENT
  Age: 31 Year
  Sex: Male
  Weight: 233.18 kg

DRUGS (3)
  1. OLANZAPINE [Suspect]
     Indication: HOMICIDAL IDEATION
     Dosage: 10 MG ONCE PO
     Route: 048
     Dates: start: 20040321, end: 20040322
  2. OLANZAPINE [Suspect]
     Indication: SUICIDAL IDEATION
     Dosage: 10 MG ONCE PO
     Route: 048
     Dates: start: 20040321, end: 20040322
  3. VENLAFAXINE HCL [Concomitant]

REACTIONS (8)
  - CHEST PAIN [None]
  - CONFUSIONAL STATE [None]
  - FLUSHING [None]
  - HYPERTHERMIA [None]
  - NEUROLEPTIC MALIGNANT SYNDROME [None]
  - PSYCHOMOTOR HYPERACTIVITY [None]
  - RESPIRATORY DISORDER [None]
  - TACHYCARDIA [None]
